FAERS Safety Report 9216303 (Version 1)
Quarter: 2013Q2

REPORT INFORMATION
  Report Type: Spontaneous
  Country: IT (occurrence: None)
  Receive Date: 20130403
  Receipt Date: 20130403
  Transmission Date: 20140414
  Serious: Yes (Other)
  Sender: FDA-Public Use
  Company Number: 1650945

PATIENT
  Age: 77 Year
  Sex: Female

DRUGS (6)
  1. IRINOTECAN HYDROCHLORIDE [Suspect]
     Indication: RECTAL CANCER
     Dosage: 244.8 MG, CYCLICAL, INTRAVENOUS
     Dates: start: 20121105, end: 20121105
  2. FLUOROURACIL TEVA [Suspect]
     Indication: RECTAL CANCER
     Dosage: 544 MG, CYCLICAL, INTRAVENOUS
     Dates: start: 20121105, end: 20121105
  3. AVASTIN /00848101/ [Suspect]
     Indication: RECTAL CANCER
     Dosage: 260 MG, CYCLICAL, INTRAVENOUS
     Dates: start: 20121105, end: 20121105
  4. RANIDIL [Concomitant]
  5. ONDANSETRONE HIKMA [Concomitant]
  6. SOLDESAM [Concomitant]

REACTIONS (7)
  - Nail discolouration [None]
  - Nausea [None]
  - Vomiting [None]
  - Stomatitis [None]
  - Conjunctivitis [None]
  - Dyspnoea [None]
  - Wheezing [None]
